FAERS Safety Report 5699796-0 (Version None)
Quarter: 2008Q2

REPORT INFORMATION
  Report Type: 
  Country: None (occurrence: None)
  Receive Date: 20080410
  Receipt Date: 20080410
  Transmission Date: 20081010
  Serious: Yes (Other)
  Sender: FDA-Public Use
  Company Number: None

PATIENT
  Age: 58 Year
  Sex: Male
  Weight: 136.0791 kg

DRUGS (1)
  1. HEPARIN [Suspect]
     Dates: start: 20080107

REACTIONS (4)
  - PROCEDURAL COMPLICATION [None]
  - RESPIRATORY ARREST [None]
  - TREATMENT FAILURE [None]
  - WHITE CLOT SYNDROME [None]
